FAERS Safety Report 5932110-1 (Version None)
Quarter: 2008Q4

REPORT INFORMATION
  Report Type: 
  Country: None (occurrence: None)
  Receive Date: 20081027
  Receipt Date: 20081027
  Transmission Date: 20090506
  Serious: Yes (Other)
  Sender: FDA-Public Use
  Company Number: None

PATIENT
  Age: 57 Year
  Sex: Female
  Weight: 66.2252 kg

DRUGS (1)
  1. NEURONTIN [Suspect]
     Indication: NEUROFIBROMATOSIS
     Dosage: 300MG PO QD
     Route: 048
     Dates: start: 20031125, end: 20031201

REACTIONS (2)
  - PRURITUS [None]
  - RASH [None]
